FAERS Safety Report 8530210-3 (Version None)
Quarter: 2012Q3

REPORT INFORMATION
  Report Type: 
  Country: None (occurrence: None)
  Receive Date: 20120723
  Receipt Date: 20120716
  Transmission Date: 20120928
  Serious: Yes (Other)
  Sender: FDA-Public Use
  Company Number: US-PFIZER INC-2012171982

PATIENT
  Age: 59 Year
  Sex: Female
  Weight: 54.422 kg

DRUGS (7)
  1. MINOCYCLINE HCL [Suspect]
     Indication: TOOTH DISORDER
     Dosage: UNK
  2. TYLENOL [Concomitant]
     Indication: HEADACHE
  3. FLONASE [Concomitant]
     Indication: HYPERSENSITIVITY
     Dosage: UNK
  4. VITAMIN D [Concomitant]
     Dosage: UNK
  5. CALCIUM [Concomitant]
     Dosage: UNK
  6. CLINDAMYCIN PHOSPHATE [Suspect]
     Indication: RASH
     Dosage: UNK, 2X/DAY
     Route: 061
     Dates: end: 20111101
  7. TYLENOL [Concomitant]
     Indication: PAIN
     Dosage: UNK

REACTIONS (3)
  - RASH [None]
  - DRUG DEPENDENCE [None]
  - TOOTH DISORDER [None]
